FAERS Safety Report 20567642 (Version 1)
Quarter: 2022Q1

REPORT INFORMATION
  Report Type: Spontaneous
  Country: DE (occurrence: DE)
  Receive Date: 20220308
  Receipt Date: 20220308
  Transmission Date: 20220423
  Serious: Yes (Other)
  Sender: FDA-Public Use
  Company Number: DE-002147023-PHNU2002DE02882

PATIENT
  Age: 36 Year
  Sex: Male
  Weight: 55 kg

DRUGS (6)
  1. CLOZAPINE [Suspect]
     Active Substance: CLOZAPINE
     Indication: Psychotic disorder
     Dosage: 425 MILLIGRAM, QD
     Route: 048
     Dates: start: 20020727
  2. HALDOL [Concomitant]
     Active Substance: HALOPERIDOL
     Indication: Psychotic disorder
     Dosage: 200 MILLIGRAM, QD
     Route: 065
  3. Ciatyl [Concomitant]
     Indication: Psychotic disorder
     Dosage: 45 MILLIGRAM, QD
     Route: 048
     Dates: end: 20020822
  4. OMEPRAZOLE [Concomitant]
     Active Substance: OMEPRAZOLE
     Indication: Gastritis
     Dosage: 40 MILLIGRAM, QD
     Route: 048
     Dates: start: 20020812, end: 20020822
  5. MCP [Concomitant]
     Active Substance: METOCLOPRAMIDE HYDROCHLORIDE
     Indication: Vomiting
     Dosage: UNK
     Route: 065
  6. DIFLUCAN [Concomitant]
     Active Substance: FLUCONAZOLE
     Indication: Pneumonia fungal
     Dosage: 40 MILLILITER, QD
     Route: 048
     Dates: start: 20020810, end: 20020823

REACTIONS (3)
  - Delirium [Recovering/Resolving]
  - Drug level increased [Unknown]
  - Salivary hypersecretion [Unknown]

NARRATIVE: CASE EVENT DATE: 20020820
